FAERS Safety Report 10709516 (Version 1)
Quarter: 2015Q1

REPORT INFORMATION
  Report Type: Spontaneous
  Country: US (occurrence: None)
  Receive Date: 20150113
  Receipt Date: 20150113
  Transmission Date: 20150721
  Serious: No
  Sender: FDA-Public Use
  Company Number: None

PATIENT
  Age: 49 Year
  Weight: 49.9 kg

DRUGS (1)
  1. LEVOFLAXACIN 500MG DR. REDDY [Suspect]
     Active Substance: LEVOFLOXACIN
     Indication: SINUSITIS
     Route: 048
     Dates: start: 20141111, end: 20141115

REACTIONS (4)
  - Musculoskeletal pain [None]
  - Pain in extremity [None]
  - Discomfort [None]
  - Pain [None]

NARRATIVE: CASE EVENT DATE: 20141111
